FAERS Safety Report 6033538-4 (Version None)
Quarter: 2009Q1

REPORT INFORMATION
  Report Type: 
  Country: None (occurrence: None)
  Receive Date: 20090109
  Receipt Date: 20090102
  Transmission Date: 20090719
  Serious: Yes (Death)
  Sender: FDA-Public Use
  Company Number: US-GILEAD-2009-0019699

PATIENT
  Sex: Female
  Weight: 96.248 kg

DRUGS (18)
  1. LETAIRIS [Suspect]
     Indication: PULMONARY ARTERIAL HYPERTENSION
     Route: 048
     Dates: start: 20080911
  2. RESTORIL [Concomitant]
  3. TRICOR [Concomitant]
  4. ALDACTAZIDE [Concomitant]
  5. DEMADEX [Concomitant]
  6. ELAVIL [Concomitant]
  7. GLIPIZIDE [Concomitant]
     Indication: DIABETES MELLITUS
  8. NEURONTIN [Concomitant]
  9. LANTUS [Concomitant]
  10. METOPROLOL TARTRATE [Concomitant]
  11. ATROVENT [Concomitant]
  12. MAGNESIUM OXIDE [Concomitant]
  13. DURAGESIC-100 [Concomitant]
  14. LORCET-HD [Concomitant]
  15. VERAPAMIL [Concomitant]
  16. POTASSIUM CHLORIDE [Concomitant]
  17. PRINIVIL [Concomitant]
  18. CALCIUM [Concomitant]

REACTIONS (3)
  - DIZZINESS [None]
  - PULMONARY HYPERTENSION [None]
  - SUDDEN DEATH [None]
